FAERS Safety Report 20097718 (Version 2)
Quarter: 2022Q3

REPORT INFORMATION
  Report Type: Report from Study
  Country: CA (occurrence: CA)
  Receive Date: 20211122
  Receipt Date: 20220913
  Transmission Date: 20221026
  Serious: Yes (Other)
  Sender: FDA-Public Use
  Company Number: CA-PFIZER INC-202101556354

PATIENT
  Age: 78 Year
  Sex: Male

DRUGS (24)
  1. AZITHROMYCIN [Suspect]
     Active Substance: AZITHROMYCIN
     Dosage: 1 DF, 2X/DAY (2 EVERY 1 DAYS)
     Route: 048
  2. AZITHROMYCIN [Suspect]
     Active Substance: AZITHROMYCIN
     Dosage: 2 EVERY 1 DAY
     Route: 048
  3. ACLIDINIUM BROMIDE [Suspect]
     Active Substance: ACLIDINIUM BROMIDE
     Dosage: 1 DF, 1X/DAY
  4. ACLIDINIUM BROMIDE [Suspect]
     Active Substance: ACLIDINIUM BROMIDE
     Dosage: 2 EVERY 1 DAY
  5. ACLIDINIUM BROMIDE [Suspect]
     Active Substance: ACLIDINIUM BROMIDE
     Dosage: 1 DF, 1 EVERY 1 DAY
  6. ACLIDINIUM BROMIDE [Suspect]
     Active Substance: ACLIDINIUM BROMIDE
     Dosage: 1 EVERY 1 DAY
  7. FLUTICASONE FUROATE [Suspect]
     Active Substance: FLUTICASONE FUROATE
     Dosage: 1 DF, SPRAY METERED DOSE
  8. CALCIUM CARBONATE\ERGOCALCIFEROL [Suspect]
     Active Substance: CALCIUM CARBONATE\ERGOCALCIFEROL
     Dosage: UNK, 1X/DAY
     Route: 065
  9. FORMOTEROL FUMARATE\MOMETASONE FUROATE [Suspect]
     Active Substance: FORMOTEROL FUMARATE\MOMETASONE FUROATE
     Dosage: 2 DF, 2X/DAY
  10. NUCALA [Suspect]
     Active Substance: MEPOLIZUMAB
     Indication: Asthma
     Dosage: 100 MG
     Route: 042
  11. ALBUTEROL SULFATE [Suspect]
     Active Substance: ALBUTEROL SULFATE
     Dosage: UNK, 3X/DAY
  12. ALBUTEROL SULFATE [Suspect]
     Active Substance: ALBUTEROL SULFATE
     Dosage: 2 DF
  13. ALBUTEROL SULFATE [Suspect]
     Active Substance: ALBUTEROL SULFATE
     Dosage: 2 DF, 4X/DAY
  14. ALBUTEROL SULFATE [Suspect]
     Active Substance: ALBUTEROL SULFATE
     Dosage: UNK, 2X/DAY
  15. UNIPHYL [Suspect]
     Active Substance: THEOPHYLLINE ANHYDROUS
     Dosage: 1 DF, 1X/DAY
  16. ALBUTEROL SULFATE [Suspect]
     Active Substance: ALBUTEROL SULFATE
     Dosage: 2.6 MG, 2X/DAY
     Route: 065
  17. MOMETASONE FUROATE [Suspect]
     Active Substance: MOMETASONE FUROATE
     Dosage: 2 EVERY 1 DAYS
  18. ALBUTEROL SULFATE [Suspect]
     Active Substance: ALBUTEROL SULFATE
     Dosage: 2 DF
  19. ALBUTEROL SULFATE [Suspect]
     Active Substance: ALBUTEROL SULFATE
     Dosage: 2.6 MG, 2 EVERY 1 DAY
  20. ALBUTEROL SULFATE [Suspect]
     Active Substance: ALBUTEROL SULFATE
     Dosage: 3 EVERY 1 DAY
  21. ALBUTEROL SULFATE [Suspect]
     Active Substance: ALBUTEROL SULFATE
     Dosage: 2 DF, 4 EVERY 1 DAY
  22. ALBUTEROL SULFATE [Suspect]
     Active Substance: ALBUTEROL SULFATE
     Dosage: 2 EVERY 1 DAY
  23. UNIPHYL [Suspect]
     Active Substance: THEOPHYLLINE ANHYDROUS
     Dosage: 1 DF, 1 EVERY 1 DAY
  24. ZENHALE [Suspect]
     Active Substance: FORMOTEROL FUMARATE\MOMETASONE FUROATE
     Dosage: 2 DF, 2 EVERY 1 DAY, AEROSOL METERED DOSE

REACTIONS (22)
  - Anxiety [Unknown]
  - Asthma [Unknown]
  - Chronic obstructive pulmonary disease [Unknown]
  - Dupuytren^s contracture [Unknown]
  - Dyspnoea [Unknown]
  - Emphysema [Unknown]
  - Fungal disease carrier [Unknown]
  - Hypercapnia [Unknown]
  - Hypertension [Unknown]
  - Inguinal hernia repair [Unknown]
  - Insomnia [Unknown]
  - Loss of personal independence in daily activities [Unknown]
  - Lung diffusion disorder [Unknown]
  - Lung neoplasm [Unknown]
  - Oropharyngeal candidiasis [Unknown]
  - Pneumonia [Unknown]
  - Respiratory disorder [Unknown]
  - Sleep disorder due to a general medical condition [Unknown]
  - Stenotrophomonas infection [Unknown]
  - Therapeutic product effect incomplete [Unknown]
  - Weight increased [Unknown]
  - Wheezing [Unknown]
